FAERS Safety Report 9003329 (Version 1)
Quarter: 2013Q1

REPORT INFORMATION
  Report Type: Spontaneous
  Country: GB (occurrence: GB)
  Receive Date: 20130108
  Receipt Date: 20130108
  Transmission Date: 20140127
  Serious: Yes (Hospitalization)
  Sender: FDA-Public Use
  Company Number: GB-AMGEN-GBRSP2013000624

PATIENT
  Age: 78 Year
  Sex: Male

DRUGS (14)
  1. DENOSUMAB [Suspect]
     Indication: RHEUMATOID ARTHRITIS
     Dosage: UNK
     Dates: start: 20121122
  2. BEZAFIBRATE [Concomitant]
  3. CALCICHEW D3 [Concomitant]
  4. DOXAZOSIN [Concomitant]
  5. FERROUS FUMARATE [Concomitant]
  6. HYDROXYCHLOROQUINE [Concomitant]
  7. IPRATROPIUM BROMIDE [Concomitant]
  8. LACTULOSE [Concomitant]
  9. LANSOPRAZOLE [Concomitant]
  10. ORAMORPH [Concomitant]
  11. SALBUTAMOL [Concomitant]
  12. SERETIDE [Concomitant]
  13. SULFASALAZINE [Concomitant]
  14. VERAPAMIL HYDROCHLORIDE [Concomitant]

REACTIONS (2)
  - Abdominal pain [Not Recovered/Not Resolved]
  - Dyspnoea [Recovering/Resolving]
